FAERS Safety Report 26194479 (Version 1)
Quarter: 2025Q4

REPORT INFORMATION
  Report Type: Spontaneous
  Country: EU (occurrence: EU)
  Receive Date: 20251224
  Receipt Date: 20251224
  Transmission Date: 20260118
  Serious: Yes (Other)
  Sender: JOHNSON AND JOHNSON
  Company Number: EU-CELLTRION INC.-2025FR045190

PATIENT
  Age: 69 Year
  Sex: Male

DRUGS (5)
  1. INFLIXIMAB [Suspect]
     Active Substance: INFLIXIMAB
     Indication: Spondyloarthropathy
     Dosage: 5 MG/KG, EVERY 7 WEEKS
     Route: 042
  2. METHOTREXATE [Suspect]
     Active Substance: METHOTREXATE
     Indication: Spondyloarthropathy
     Dosage: 15 MG, WEEKLY
  3. METHOTREXATE [Suspect]
     Active Substance: METHOTREXATE
     Dosage: 17.5 MG, WEEKLY
  4. METHOTREXATE [Suspect]
     Active Substance: METHOTREXATE
     Dosage: 20 MG, WEEKLY
  5. FOLIC ACID [Suspect]
     Active Substance: FOLIC ACID
     Indication: Spondyloarthropathy
     Dosage: 15 MG, ONCE A WEEK

REACTIONS (2)
  - Prostate cancer [Recovering/Resolving]
  - Intentional product use issue [Unknown]
